FAERS Safety Report 13399690 (Version 1)
Quarter: 2017Q2

REPORT INFORMATION
  Report Type: Spontaneous
  Country: US (occurrence: US)
  Receive Date: 20170404
  Receipt Date: 20170404
  Transmission Date: 20170830
  Serious: Yes (Death)
  Sender: FDA-Public Use
  Company Number: None

PATIENT
  Age: 49 Year
  Sex: Female

DRUGS (14)
  1. OXYCODONE [Concomitant]
     Active Substance: OXYCODONE
  2. BUDESONIDE SUS [Concomitant]
  3. TIOPRONIN POW [Concomitant]
  4. TIZANIDINE. [Concomitant]
     Active Substance: TIZANIDINE
  5. PREDNISONE. [Concomitant]
     Active Substance: PREDNISONE
  6. MONTELUKAST [Concomitant]
     Active Substance: MONTELUKAST SODIUM
  7. HYDROXYPAM [Concomitant]
     Active Substance: HYDROXYZINE PAMOATE
  8. LINZESS [Concomitant]
     Active Substance: LINACLOTIDE
  9. XOLAIR [Suspect]
     Active Substance: OMALIZUMAB
     Indication: ASTHMA
     Route: 058
     Dates: start: 20170310, end: 20170331
  10. CLONAZEPAM. [Concomitant]
     Active Substance: CLONAZEPAM
  11. ASPIRIN CHEW [Concomitant]
  12. MORPHINE SULF [Concomitant]
     Active Substance: MORPHINE SULFATE
  13. ATORVASTATIN [Concomitant]
     Active Substance: ATORVASTATIN
  14. IBUPROFEN. [Concomitant]
     Active Substance: IBUPROFEN

REACTIONS (1)
  - Death [None]

NARRATIVE: CASE EVENT DATE: 201703
